FAERS Safety Report 4801328-3 (Version None)
Quarter: 2005Q4

REPORT INFORMATION
  Report Type: 
  Country: None (occurrence: None)
  Receive Date: 20051017
  Receipt Date: 20050808
  Transmission Date: 20060501
  Serious: Yes (Life-Threatening, Hospitalization)
  Sender: FDA-Public Use
  Company Number: DE-MERCK-0508DEU00067

PATIENT
  Age: 68 Year
  Sex: Female
  Weight: 80 kg

DRUGS (9)
  1. ZETIA [Suspect]
     Indication: LIPID METABOLISM DISORDER
     Route: 048
     Dates: start: 20050501, end: 20050708
  2. ASPIRIN [Concomitant]
     Route: 048
  3. CLOPIDOGREL BISULFATE [Concomitant]
     Route: 048
  4. ESOMEPRAZOLE MAGNESIUM [Concomitant]
     Route: 048
  5. BISOPROLOL [Concomitant]
     Route: 048
  6. HYDROCHLOROTHIAZIDE AND VALSARTAN [Concomitant]
     Route: 048
  7. TORSEMIDE [Concomitant]
     Route: 048
  8. NITRENDIPINE [Concomitant]
     Route: 048
  9. INSULIN [Concomitant]
     Route: 065

REACTIONS (3)
  - RENAL FAILURE ACUTE [None]
  - RESPIRATORY TRACT INFECTION [None]
  - RHABDOMYOLYSIS [None]
